FAERS Safety Report 9343688 (Version 1)
Quarter: 2013Q2

REPORT INFORMATION
  Report Type: Spontaneous
  Country: US (occurrence: US)
  Receive Date: 20130612
  Receipt Date: 20130612
  Transmission Date: 20140414
  Serious: Yes (Other)
  Sender: FDA-Public Use
  Company Number: PHEH2013US012440

PATIENT
  Sex: Female

DRUGS (1)
  1. DIOVAN HCT [Suspect]
     Dosage: 1 DF (VALS 160 MG/ HCT 12.5 MG) ONCE DAILY

REACTIONS (3)
  - Transient ischaemic attack [Unknown]
  - VIIth nerve paralysis [Unknown]
  - Headache [Unknown]
